FAERS Safety Report 16735065 (Version 7)
Quarter: 2025Q2

REPORT INFORMATION
  Report Type: Spontaneous
  Country: US (occurrence: US)
  Receive Date: 20190823
  Receipt Date: 20250519
  Transmission Date: 20250716
  Serious: Yes (Other)
  Sender: PFIZER
  Company Number: US-PFIZER INC-2019361717

PATIENT
  Age: 64 Year
  Sex: Female

DRUGS (2)
  1. XELJANZ XR [Suspect]
     Active Substance: TOFACITINIB CITRATE
     Indication: Arthritis
  2. XELJANZ XR [Suspect]
     Active Substance: TOFACITINIB CITRATE
     Indication: Rheumatoid arthritis
     Route: 048
     Dates: start: 2023

REACTIONS (15)
  - Diabetes mellitus [Unknown]
  - Spinal operation [Unknown]
  - Cholecystectomy [Unknown]
  - Ankle fracture [Unknown]
  - Knee operation [Unknown]
  - Pharyngitis streptococcal [Unknown]
  - Lacrimation increased [Unknown]
  - Visual impairment [Unknown]
  - Arthralgia [Not Recovered/Not Resolved]
  - Joint swelling [Unknown]
  - Tenderness [Unknown]
  - Musculoskeletal stiffness [Unknown]
  - Fall [Unknown]
  - Walking aid user [Unknown]
  - Condition aggravated [Unknown]

NARRATIVE: CASE EVENT DATE: 20231201
